FAERS Safety Report 8433420-9 (Version None)
Quarter: 2012Q2

REPORT INFORMATION
  Report Type: 
  Country: None (occurrence: None)
  Receive Date: 20120613
  Receipt Date: 20120601
  Transmission Date: 20120825
  Serious: Yes (Life-Threatening, Hospitalization, Disabling, Other)
  Sender: FDA-Public Use
  Company Number: MY-JNJFOC-20120410316

PATIENT
  Sex: Male
  Weight: 62 kg

DRUGS (10)
  1. GLUCOSE [Concomitant]
     Indication: HYPOGLYCAEMIA
     Route: 042
     Dates: start: 20120421, end: 20120421
  2. JANUVIA [Concomitant]
     Indication: HYPOGLYCAEMIA
     Route: 065
     Dates: start: 20120421, end: 20120427
  3. ABIRATERONE ACETATE [Suspect]
     Indication: PROSTATE CANCER METASTATIC
     Route: 048
     Dates: start: 20120412
  4. PREDNISOLONE [Suspect]
     Indication: PROSTATE CANCER METASTATIC
     Route: 048
     Dates: start: 20120412
  5. ANTIDIABETIC [Concomitant]
     Indication: DIABETES MELLITUS
     Route: 048
  6. INSULINE NOVOMIX [Concomitant]
     Indication: HYPOGLYCAEMIA
     Route: 065
     Dates: start: 20120421, end: 20120427
  7. ABIRATERONE ACETATE [Suspect]
     Route: 048
  8. DIAMICRON [Concomitant]
     Indication: HYPOGLYCAEMIA
     Route: 065
     Dates: start: 20120421, end: 20120427
  9. RED BLOOD CELLS [Concomitant]
     Indication: ANAEMIA
     Route: 065
     Dates: start: 20120422, end: 20120423
  10. CEDAX [Concomitant]
     Indication: HYPOGLYCAEMIA
     Route: 065
     Dates: start: 20120421, end: 20120427

REACTIONS (4)
  - HYPOGLYCAEMIA [None]
  - LETHARGY [None]
  - ANAEMIA [None]
  - HYPOKALAEMIA [None]
